FAERS Safety Report 7769736-9 (Version None)
Quarter: 2011Q3

REPORT INFORMATION
  Report Type: 
  Country: None (occurrence: None)
  Receive Date: 20110922
  Receipt Date: 20100728
  Transmission Date: 20111222
  Serious: No
  Sender: FDA-Public Use
  Company Number: US-ASTRAZENECA-2010SE35347

PATIENT
  Age: 52 Year
  Sex: Female
  Weight: 88.9 kg

DRUGS (5)
  1. SEROQUEL [Suspect]
     Indication: BIPOLAR I DISORDER
     Route: 048
     Dates: start: 20090101
  2. KLONOPIN [Concomitant]
     Route: 048
  3. TRIAMTERENE [Concomitant]
     Route: 048
  4. CELEXA [Concomitant]
     Route: 048
  5. SIMVASTATIN [Concomitant]
     Route: 048

REACTIONS (3)
  - DIABETES MELLITUS [None]
  - BLOOD GLUCOSE INCREASED [None]
  - SINUS HEADACHE [None]
